FAERS Safety Report 7680985-0 (Version None)
Quarter: 2011Q3

REPORT INFORMATION
  Report Type: 
  Country: None (occurrence: None)
  Receive Date: 20110809
  Receipt Date: 20110725
  Transmission Date: 20111222
  Serious: Yes (Other)
  Sender: FDA-Public Use
  Company Number: 2011P1007248

PATIENT
  Age: 40 Year
  Sex: Male
  Weight: 100.2449 kg

DRUGS (3)
  1. GLYBURIDE [Suspect]
     Indication: TYPE 1 DIABETES MELLITUS
     Dosage: 2.5 MG;BID;PO
     Route: 048
     Dates: start: 20110630
  2. GLYBURIDE [Suspect]
     Indication: TYPE 1 DIABETES MELLITUS
     Dosage: 2.5 MG;BID;PO
     Route: 048
     Dates: start: 20110526, end: 20110613
  3. METFORMIN [Concomitant]

REACTIONS (5)
  - ABDOMINAL PAIN UPPER [None]
  - SOMNOLENCE [None]
  - HEADACHE [None]
  - URINARY INCONTINENCE [None]
  - DIARRHOEA [None]
